FAERS Safety Report 4487364-8 (Version None)
Quarter: 2004Q4

REPORT INFORMATION
  Report Type: 
  Country: None (occurrence: None)
  Receive Date: 20041027
  Receipt Date: 20041002
  Transmission Date: 20050328
  Serious: Yes (Death)
  Sender: FDA-Public Use
  Company Number: AU-MERCK-0410AUS00032

PATIENT
  Age: 77 Year
  Sex: Male

DRUGS (5)
  1. VIOXX [Suspect]
     Indication: RHEUMATOID ARTHRITIS
     Route: 048
     Dates: start: 20021212, end: 20040415
  2. VIOXX [Suspect]
     Indication: OSTEOARTHRITIS
     Route: 048
     Dates: start: 20021212, end: 20040415
  3. ZANTAC [Concomitant]
     Route: 065
     Dates: start: 19930716, end: 20040415
  4. CALTRATE [Concomitant]
     Route: 048
     Dates: start: 19951213, end: 20040415
  5. [COMPOSITION UNSPECIFIED] [Concomitant]
     Route: 065

REACTIONS (1)
  - ACUTE MYOCARDIAL INFARCTION [None]
